FAERS Safety Report 11860186 (Version 1)
Quarter: 2015Q4

REPORT INFORMATION
  Report Type: Spontaneous
  Country: ZA (occurrence: ZA)
  Receive Date: 20151222
  Receipt Date: 20151222
  Transmission Date: 20160305
  Serious: Yes (Hospitalization)
  Sender: FDA-Public Use
  Company Number: ZA-PFIZER INC-2015437146

PATIENT
  Age: 64 Year
  Sex: Female

DRUGS (3)
  1. ESPIRIDE [Concomitant]
     Dosage: 50 MG, DAILY
  2. CELEBREX [Suspect]
     Active Substance: CELECOXIB
     Indication: OSTEOARTHRITIS
     Dosage: 200 MG, 2X/DAY
     Dates: start: 201503, end: 20151203
  3. PARACETAMOL [Concomitant]
     Active Substance: ACETAMINOPHEN
     Indication: POSTOPERATIVE CARE
     Dosage: 500 MG, 3X/DAY
     Dates: start: 2015, end: 20151203

REACTIONS (9)
  - Dysstasia [Not Recovered/Not Resolved]
  - Urinary tract infection [Recovered/Resolved]
  - Fatigue [Not Recovered/Not Resolved]
  - Asthenia [Not Recovered/Not Resolved]
  - Feeling abnormal [Not Recovered/Not Resolved]
  - Insomnia [Not Recovered/Not Resolved]
  - Headache [Not Recovered/Not Resolved]
  - Pain [Not Recovered/Not Resolved]
  - Pulmonary thrombosis [Recovered/Resolved]

NARRATIVE: CASE EVENT DATE: 201510
